FAERS Safety Report 5090317-2 (Version None)
Quarter: 2006Q3

REPORT INFORMATION
  Report Type: 
  Country: None (occurrence: None)
  Receive Date: 20060828
  Receipt Date: 20060717
  Transmission Date: 20061208
  Serious: No
  Sender: FDA-Public Use
  Company Number: US-GLAXOSMITHKLINE-A0612506A

PATIENT
  Sex: Male

DRUGS (12)
  1. WELLBUTRIN XL [Suspect]
     Indication: DEPRESSION
     Dosage: 150MG TWICE PER DAY
     Route: 048
  2. ALLERGY MEDICINE [Concomitant]
  3. COREG [Concomitant]
  4. LASIX [Concomitant]
  5. LEXAPRO [Concomitant]
  6. LIPITOR [Concomitant]
  7. ASPIRIN [Concomitant]
  8. NEPHRO-VITE [Concomitant]
  9. POTASSIUM CHLORIDE [Concomitant]
  10. SYNTHROID [Concomitant]
  11. VITAMIN B6 [Concomitant]
  12. INSULIN [Concomitant]

REACTIONS (3)
  - BLOOD INSULIN INCREASED [None]
  - DIZZINESS [None]
  - WEIGHT DECREASED [None]
